FAERS Safety Report 8155549-5 (Version None)
Quarter: 2012Q1

REPORT INFORMATION
  Report Type: 
  Country: None (occurrence: None)
  Receive Date: 20120215
  Receipt Date: 20120208
  Transmission Date: 20120608
  Serious: Yes (Congenital Anomaly, Other)
  Sender: FDA-Public Use
  Company Number: GER/GER/12/0022967

PATIENT
  Age: 0 Year
  Sex: Female
  Weight: 1.71 kg

DRUGS (5)
  1. FOLSAURE RATIOPHARM 5 MG (FOLIC ACID) [Concomitant]
  2. LAMOTRIGINE [Suspect]
     Indication: PRODUCT USED FOR UNKNOWN INDICATION
     Dosage: 150 MG, TRANSPLACENTAL, 375 MG, TRANSPLACENTAL
     Route: 064
     Dates: start: 20100928, end: 20110211
  3. LAMOTRIGINE [Suspect]
     Indication: PRODUCT USED FOR UNKNOWN INDICATION
     Dosage: 150 MG, TRANSPLACENTAL, 375 MG, TRANSPLACENTAL
     Route: 064
     Dates: start: 20100708, end: 20100928
  4. FRISIUM (CLOBAZAM) [Suspect]
     Indication: PRODUCT USED FOR UNKNOWN INDICATION
     Dosage: 2.5 MG, 3 IN 1 D, TRANSPLACENTAL
     Route: 064
     Dates: start: 20101217, end: 20110211
  5. LEVOTHYROXINE SODIUM [Concomitant]

REACTIONS (13)
  - CEREBRAL HAEMORRHAGE NEONATAL [None]
  - FOETAL HEART RATE DECELERATION [None]
  - CONGENITAL CHOROID PLEXUS CYST [None]
  - VENTRICULAR SEPTAL DEFECT [None]
  - MATERNAL DRUGS AFFECTING FOETUS [None]
  - CARDIAC ANEURYSM [None]
  - MYOCLONUS [None]
  - HYPERBILIRUBINAEMIA NEONATAL [None]
  - ATRIAL SEPTAL DEFECT [None]
  - ANAEMIA NEONATAL [None]
  - FEEDING DISORDER NEONATAL [None]
  - HYPOGLYCAEMIA NEONATAL [None]
  - NEONATAL RESPIRATORY DISTRESS SYNDROME [None]
